FAERS Safety Report 4866070-1 (Version None)
Quarter: 2005Q4

REPORT INFORMATION
  Report Type: 
  Country: None (occurrence: None)
  Receive Date: 20051227
  Receipt Date: 20051214
  Transmission Date: 20060501
  Serious: Yes (Congenital Anomaly)
  Sender: FDA-Public Use
  Company Number: US-BOEHRINGER INGELHEIM PHARMACEUTICALS, INC.-2005-BP-21588BP

PATIENT

DRUGS (1)
  1. VIRAMUNE [Suspect]
     Indication: HIV INFECTION
     Route: 015
     Dates: start: 20050709, end: 20051127

REACTIONS (3)
  - CONGENITAL CENTRAL NERVOUS SYSTEM ANOMALY [None]
  - DRUG EXPOSURE DURING PREGNANCY [None]
  - VENTRICULAR HYPERTROPHY [None]
